FAERS Safety Report 6976205-2 (Version None)
Quarter: 2010Q3

REPORT INFORMATION
  Report Type: 
  Country: None (occurrence: None)
  Receive Date: 20100910
  Receipt Date: 20090416
  Transmission Date: 20110219
  Serious: No
  Sender: FDA-Public Use
  Company Number: US-WYE-H08991509

PATIENT
  Sex: Female

DRUGS (1)
  1. PRISTIQ [Suspect]
     Route: 048
     Dates: start: 20090415, end: 20090415

REACTIONS (6)
  - HALLUCINATION [None]
  - HEADACHE [None]
  - MYDRIASIS [None]
  - PALPITATIONS [None]
  - RASH [None]
  - VOMITING [None]
